FAERS Safety Report 6446500-4 (Version None)
Quarter: 2009Q4

REPORT INFORMATION
  Report Type: 
  Country: None (occurrence: None)
  Receive Date: 20091119
  Receipt Date: 20091106
  Transmission Date: 20100525
  Serious: Yes (Other)
  Sender: FDA-Public Use
  Company Number: US-RB-025345-09

PATIENT
  Age: 22 Year
  Sex: Female

DRUGS (1)
  1. MUCINEX DM [Suspect]
     Route: 048
     Dates: start: 20091104

REACTIONS (2)
  - DRUG TOXICITY [None]
  - LOSS OF CONSCIOUSNESS [None]
